FAERS Safety Report 7970817-5 (Version None)
Quarter: 2011Q4

REPORT INFORMATION
  Report Type: 
  Country: None (occurrence: None)
  Receive Date: 20111212
  Receipt Date: 20111206
  Transmission Date: 20120403
  Serious: Yes (Death, Hospitalization, Other)
  Sender: FDA-Public Use
  Company Number: US-GLAXOSMITHKLINE-A0836481A

PATIENT
  Age: 88 Year
  Sex: Female

DRUGS (1)
  1. PROMACTA [Suspect]
     Indication: IDIOPATHIC THROMBOCYTOPENIC PURPURA
     Route: 048
     Dates: start: 20090126

REACTIONS (5)
  - INFECTION [None]
  - LYMPHADENOPATHY [None]
  - PNEUMONIA [None]
  - HEPATOSPLENOMEGALY [None]
  - CHRONIC LYMPHOCYTIC LEUKAEMIA [None]
